FAERS Safety Report 17545547 (Version 2)
Quarter: 2020Q1

REPORT INFORMATION
  Report Type: Spontaneous
  Country: US (occurrence: US)
  Receive Date: 20200316
  Receipt Date: 20200319
  Transmission Date: 20200409
  Serious: Yes (Other)
  Sender: FDA-Public Use
  Company Number: US-RECKITT BENCKISER HEALTHCARE INT LIMITED-RB-83303-2020

PATIENT
  Age: 56 Year
  Sex: Female

DRUGS (9)
  1. MUCINEX FAST-MAX NIGHT TIME COLD AND FLU (ACETAMINOPHEN\DIPHENHYDR\PHENYLEP) [Suspect]
     Active Substance: ACETAMINOPHEN\DIPHENHYDRAMINE HYDROCHLORIDE\PHENYLEPHRINE HYDROCHLORIDE
     Indication: MALAISE
  2. IBUPROFEN. [Concomitant]
     Active Substance: IBUPROFEN
     Indication: PRODUCT USED FOR UNKNOWN INDICATION
     Dosage: UNK, PRN
     Route: 065
  3. MUCINEX FAST-MAX NIGHT TIME COLD AND FLU (ACETAMINOPHEN\DIPHENHYDR\PHENYLEP) [Suspect]
     Active Substance: ACETAMINOPHEN\DIPHENHYDRAMINE HYDROCHLORIDE\PHENYLEPHRINE HYDROCHLORIDE
     Indication: COUGH
     Dosage: TOOK TWO CAPLETS AT AN UNKNOWN FREQUENCY
     Route: 065
     Dates: start: 20200307
  4. MUCINEX FAST-MAX NIGHT TIME COLD AND FLU (ACETAMINOPHEN\DIPHENHYDR\PHENYLEP) [Suspect]
     Active Substance: ACETAMINOPHEN\DIPHENHYDRAMINE HYDROCHLORIDE\PHENYLEPHRINE HYDROCHLORIDE
     Indication: NASOPHARYNGITIS
  5. MUCINEX [Suspect]
     Active Substance: GUAIFENESIN
     Indication: NASOPHARYNGITIS
  6. MUCINEX [Suspect]
     Active Substance: GUAIFENESIN
     Indication: MALAISE
     Dosage: TOOK 2 CAPLETS AT AN UNKNOWN FREQUENCY
     Route: 065
     Dates: start: 20200308
  7. LEVOTHYROXINE. [Concomitant]
     Active Substance: LEVOTHYROXINE
     Indication: PRODUCT USED FOR UNKNOWN INDICATION
     Dosage: UNK
     Route: 065
  8. MULTIVITAMINS [VITAMINS NOS] [Concomitant]
     Active Substance: VITAMINS
     Indication: PRODUCT USED FOR UNKNOWN INDICATION
     Dosage: UNK
     Route: 065
  9. MUCINEX [Suspect]
     Active Substance: GUAIFENESIN
     Indication: COUGH

REACTIONS (4)
  - Dizziness [Recovered/Resolved]
  - Syncope [Recovered/Resolved]
  - Nausea [Recovered/Resolved]
  - Decreased appetite [Recovering/Resolving]

NARRATIVE: CASE EVENT DATE: 20200307
